FAERS Safety Report 22722117 (Version 2)
Quarter: 2025Q4

REPORT INFORMATION
  Report Type: Report from Study
  Country: EG (occurrence: EG)
  Receive Date: 20230719
  Receipt Date: 20251118
  Transmission Date: 20260118
  Serious: Yes (Other)
  Sender: NOVARTIS
  Company Number: EG-002147023-NVSC2021EG230611

PATIENT
  Age: 82 Year
  Sex: Male

DRUGS (24)
  1. ENTRESTO [Suspect]
     Active Substance: SACUBITRIL\VALSARTAN
     Indication: Cardiac failure
     Dosage: 300 MG, BID(100 MG IN THE MORING AND 200MG IN EVENING)
     Route: 048
     Dates: start: 20190201
  2. ENTRESTO [Suspect]
     Active Substance: SACUBITRIL\VALSARTAN
     Dosage: 1 DOSAGE FORM, BID (100 MG STAYED ON THIS REGIMEN LESS THAN 1 YEAR)
     Route: 065
     Dates: start: 2020
  3. ENTRESTO [Suspect]
     Active Substance: SACUBITRIL\VALSARTAN
     Dosage: 1.5 DOSAGE FORM, BID (200 MG HALF TABLET IN THE MORNING AND ONE TABLET IN THE EVENING)
     Route: 065
  4. ENTRESTO [Suspect]
     Active Substance: SACUBITRIL\VALSARTAN
     Dosage: 0.5 DOSAGE FORM, BID (200 MG HALF TABLET IN THE MORNING AND HALF TABLET IN THE EVENING MORE THAN 1 Y
     Route: 065
  5. ENTRESTO [Suspect]
     Active Substance: SACUBITRIL\VALSARTAN
     Dosage: 200 MG, BID (HALF TABLET TWICE DAILY (OFF LABEL DOSE)
     Route: 048
  6. BISOPROLOL FUMARATE [Suspect]
     Active Substance: BISOPROLOL FUMARATE
     Indication: Cardiac disorder
     Dosage: 1 DOSAGE FORM
     Route: 065
  7. BISOPROLOL FUMARATE [Suspect]
     Active Substance: BISOPROLOL FUMARATE
     Dosage: 0.5 DOSAGE FORM, QD (DUE TO DECREASING IN  BLOOD PRESSURE) (MORE THAN 2 YEARS) (STRENGTH WAS 2.5)
     Route: 065
  8. LASIX [Suspect]
     Active Substance: FUROSEMIDE
     Indication: Diuretic therapy
     Dosage: 0.25 MG (LONG TIME AGO, ONCE EVERY OTHER DAY 3 TIMES PER WEEK (SATURDAY-MONDAY AND WEDNESDAY)) (STRE
     Route: 065
  9. ELIQUIS [Concomitant]
     Active Substance: APIXABAN
     Indication: Anticoagulant therapy
     Dosage: 1 DF, BID (MORE THAN 2 YEARS)
     Route: 065
     Dates: start: 2020
  10. Optamine [Concomitant]
     Indication: Renal disorder
     Dosage: 1 DF, BID
     Route: 065
     Dates: start: 2021
  11. ALFACALCIDOL [Concomitant]
     Active Substance: ALFACALCIDOL
     Indication: Product used for unknown indication
     Dosage: 1 DF, QD
     Route: 065
     Dates: start: 2020
  12. FEBUXOSTAT [Concomitant]
     Active Substance: FEBUXOSTAT
     Indication: Hypovitaminosis
     Dosage: 0.5 DF, BID (40)
     Route: 065
     Dates: start: 2020
  13. FEBUXOSTAT [Concomitant]
     Active Substance: FEBUXOSTAT
     Dosage: 1 DOSAGE FORM, QD (A LONG TIME AGO)
     Route: 065
  14. Magnesium plus [Concomitant]
     Indication: Blood cholesterol increased
     Dosage: 1 DF, BID (LONG TIME AGO)
     Route: 065
     Dates: start: 2021
  15. Magnesium plus [Concomitant]
     Indication: Hypovitaminosis
  16. ATORVASTATIN CALCIUM\EZETIMIBE [Concomitant]
     Active Substance: ATORVASTATIN CALCIUM\EZETIMIBE
     Indication: Blood cholesterol increased
     Dosage: 1 DF, BID
     Route: 065
     Dates: start: 2020
  17. ATORVASTATIN CALCIUM\EZETIMIBE [Concomitant]
     Active Substance: ATORVASTATIN CALCIUM\EZETIMIBE
     Dosage: 1 DF, BID (20/10 STRENGTH, YEARS AGO)
     Route: 065
     Dates: start: 2020
  18. JANUVIA [Concomitant]
     Active Substance: SITAGLIPTIN PHOSPHATE
     Indication: Diabetes mellitus
     Dosage: 1 DOSAGE FORM, QD (A LONG TIME  AGO)
     Route: 065
  19. Diamicron [Concomitant]
     Indication: Diabetes mellitus
     Dosage: 1 DOSAGE FORM, QD (STRENGTH WAS 60, A LONG TIME GAO)
     Route: 065
  20. Clopex [Concomitant]
     Indication: Anticoagulant therapy
     Dosage: 1 DOSAGE FORM (ONCE EVERY OTHER DAY 3 TIMES PER WEEK (  SATURDAY-MONDAY AND WEDNESDAY) (2 YEARS AGO)
     Route: 065
  21. TAMSULOSIN HYDROCHLORIDE [Concomitant]
     Active Substance: TAMSULOSIN HYDROCHLORIDE
     Indication: Prostatomegaly
     Dosage: 1 DOSAGE FORM, QD (2 YEARS AGO)
     Route: 065
  22. AMINO ACIDS, SOURCE UNSPECIFIED [Concomitant]
     Active Substance: AMINO ACIDS, SOURCE UNSPECIFIED
     Indication: Renal disorder
     Dosage: 2 DOSAGE FORM, QD ( MORE THAN 2 YEARS)
     Route: 065
  23. Vitamax [Concomitant]
     Indication: Hypovitaminosis
     Dosage: 1 DOSAGE FORM, QD (LONG TIME AGO)
     Route: 065
  24. Dinitra [Concomitant]
     Indication: Cardiac disorder
     Dosage: 1 DOSAGE FORM, ONCE/SINGLE (MORE THAN 8 OR 9 YEARS)
     Route: 060

REACTIONS (10)
  - Angina pectoris [Recovered/Resolved]
  - Syncope [Unknown]
  - Head injury [Unknown]
  - Sensory loss [Recovered/Resolved]
  - Ejection fraction decreased [Not Recovered/Not Resolved]
  - Blood magnesium decreased [Recovered/Resolved]
  - Blood creatinine increased [Unknown]
  - Hypotension [Unknown]
  - Wrong technique in product usage process [Unknown]
  - Drug ineffective [Not Recovered/Not Resolved]

NARRATIVE: CASE EVENT DATE: 20210801
